FAERS Safety Report 8248573-5 (Version None)
Quarter: 2012Q1

REPORT INFORMATION
  Report Type: 
  Country: None (occurrence: None)
  Receive Date: 20120330
  Receipt Date: 20120321
  Transmission Date: 20120608
  Serious: Yes (Other)
  Sender: FDA-Public Use
  Company Number: US-ASTRAZENECA-2012SE04463

PATIENT
  Age: 40 Year
  Sex: Male
  Weight: 97.5 kg

DRUGS (13)
  1. SEROQUEL [Suspect]
     Indication: POST-TRAUMATIC STRESS DISORDER
     Route: 048
     Dates: start: 20070101
  2. DILANTIN [Concomitant]
     Indication: GRAND MAL CONVULSION
     Route: 048
  3. VALIUM [Concomitant]
     Route: 048
  4. SEROQUEL [Suspect]
     Indication: BIPOLAR DISORDER
     Route: 048
     Dates: start: 20070101
  5. SEROQUEL [Suspect]
     Route: 048
  6. HYDROCODONE BITARTRATE [Concomitant]
     Dosage: 10/500 MG
  7. VALIUM [Concomitant]
     Route: 048
  8. SEROQUEL [Suspect]
     Route: 048
  9. WARFARIN SODIUM [Concomitant]
     Indication: ANTICOAGULANT THERAPY
  10. DILANTIN [Concomitant]
     Indication: CONVULSION
     Route: 048
  11. COUMADIN [Concomitant]
  12. SEROQUEL [Suspect]
     Indication: SLEEP DISORDER
     Route: 048
     Dates: start: 20070101
  13. SEROQUEL [Suspect]
     Route: 048

REACTIONS (10)
  - CONVULSION [None]
  - OFF LABEL USE [None]
  - OVERWEIGHT [None]
  - BLOOD CHOLESTEROL INCREASED [None]
  - BLOOD PRESSURE INCREASED [None]
  - ARTERIAL THROMBOSIS LIMB [None]
  - THROMBOSIS [None]
  - INSOMNIA [None]
  - HEADACHE [None]
  - DRUG DOSE OMISSION [None]
